FAERS Safety Report 6297726-4 (Version None)
Quarter: 2009Q3

REPORT INFORMATION
  Report Type: 
  Country: None (occurrence: None)
  Receive Date: 20090805
  Receipt Date: 20090722
  Transmission Date: 20100115
  Serious: Yes (Hospitalization)
  Sender: FDA-Public Use
  Company Number: US-ROCHE-643723

PATIENT
  Sex: Female

DRUGS (2)
  1. PEGASYS [Suspect]
     Indication: HEPATITIS C
     Dosage: FORM: PRE-FILLED SYRINGE
     Route: 065
     Dates: start: 20090710, end: 20090716
  2. COPEGUS [Suspect]
     Indication: HEPATITIS C
     Dosage: DOSE: 1200 MG DIVIDED DOSES
     Route: 065
     Dates: start: 20090710, end: 20090716

REACTIONS (6)
  - ASTHENIA [None]
  - BACK PAIN [None]
  - BLOOD URINE PRESENT [None]
  - HYPERSENSITIVITY [None]
  - NAUSEA [None]
  - OCULAR ICTERUS [None]
